FAERS Safety Report 16683386 (Version 1)
Quarter: 2019Q3

REPORT INFORMATION
  Report Type: Spontaneous
  Country: AU (occurrence: AU)
  Receive Date: 20190808
  Receipt Date: 20190808
  Transmission Date: 20191004
  Serious: Yes (Life-Threatening, Hospitalization, Other)
  Sender: FDA-Public Use
  Company Number: AU-AMNEAL PHARMACEUTICALS-2019AMN00858

PATIENT
  Age: 44 Year
  Sex: Female
  Weight: 68 kg

DRUGS (3)
  1. TEMAZEPAM. [Suspect]
     Active Substance: TEMAZEPAM
     Indication: PRODUCT USED FOR UNKNOWN INDICATION
     Dosage: UNK
     Route: 065
  2. VENLAFAXINE HYDROCHLORIDE. [Suspect]
     Active Substance: VENLAFAXINE HYDROCHLORIDE
     Indication: PRODUCT USED FOR UNKNOWN INDICATION
     Dosage: 25.2 G
     Route: 065
  3. NORADRENALINE [Suspect]
     Active Substance: NOREPINEPHRINE
     Indication: PRODUCT USED FOR UNKNOWN INDICATION
     Dosage: UNK (UPTITRATED TO 10 MG/MIN)
     Route: 065

REACTIONS (4)
  - Cardiomyopathy [Recovered/Resolved]
  - Generalised tonic-clonic seizure [Recovered/Resolved]
  - Delirium [Recovered/Resolved]
  - Overdose [Recovered/Resolved]
